FAERS Safety Report 9498223 (Version 2)
Quarter: 2013Q3

REPORT INFORMATION
  Report Type: Spontaneous
  Country: US (occurrence: US)
  Receive Date: 20130904
  Receipt Date: 20130904
  Transmission Date: 20140515
  Serious: Yes (Other)
  Sender: FDA-Public Use
  Company Number: US-COVIDIEN/TYCO HEALTHCARE/MALLINCKRODT-T201304141

PATIENT
  Age: 60 Year
  Sex: Female
  Weight: 42.63 kg

DRUGS (3)
  1. FENTANYL TRANSDERMAL SYSTEM [Suspect]
     Indication: ARTHRITIS
     Dosage: 75 UG/HR, ONE PATCH Q 72 HRS
     Route: 062
     Dates: start: 201308, end: 20130812
  2. FENTANYL TRANSDERMAL SYSTEM [Suspect]
     Dosage: UNK
     Dates: start: 201304, end: 201308
  3. HYDROCODONE/ACETAMINOPHEN [Concomitant]
     Indication: PAIN
     Dosage: 10/325 MG, PRN
     Route: 048

REACTIONS (5)
  - Loss of consciousness [Recovered/Resolved]
  - Nausea [Not Recovered/Not Resolved]
  - Feeling cold [Recovered/Resolved]
  - Application site pain [Unknown]
  - Application site erythema [Unknown]
